FAERS Safety Report 15676094 (Version 1)
Quarter: 2018Q4

REPORT INFORMATION
  Report Type: Spontaneous
  Country: US (occurrence: US)
  Receive Date: 20181130
  Receipt Date: 20181130
  Transmission Date: 20190205
  Serious: No
  Sender: FDA-Public Use
  Company Number: US-PFIZER INC-2018482857

PATIENT
  Age: 67 Year
  Sex: Male

DRUGS (2)
  1. CHANTIX [Suspect]
     Active Substance: VARENICLINE TARTRATE
     Indication: SMOKING CESSATION THERAPY
     Dosage: UNK
     Dates: end: 201808
  2. WELLBUTRIN [Suspect]
     Active Substance: BUPROPION HYDROCHLORIDE
     Indication: DEPRESSION
     Dosage: UNK

REACTIONS (12)
  - Mood altered [Unknown]
  - Oral mucosal blistering [Unknown]
  - Aggression [Unknown]
  - Irritability [Unknown]
  - Rash [Unknown]
  - Skin irritation [Unknown]
  - Swollen tongue [Unknown]
  - Lip swelling [Unknown]
  - Ageusia [Not Recovered/Not Resolved]
  - Depression [Unknown]
  - Stomatitis [Not Recovered/Not Resolved]
  - Feeling abnormal [Unknown]
